FAERS Safety Report 4868833-5 (Version None)
Quarter: 2005Q4

REPORT INFORMATION
  Report Type: 
  Country: None (occurrence: None)
  Receive Date: 20051223
  Receipt Date: 20051207
  Transmission Date: 20060501
  Serious: No
  Sender: FDA-Public Use
  Company Number: 1314819-2004-00016

PATIENT
  Age: 23 Year
  Sex: Female
  Weight: 54 kg

DRUGS (1)
  1. CLINDOXYL [Suspect]
     Indication: ACNE
     Dosage: B.I.D. 060

REACTIONS (3)
  - DERMATITIS CONTACT [None]
  - EXCORIATION [None]
  - RASH ERYTHEMATOUS [None]
